FAERS Safety Report 21052364 (Version 1)
Quarter: 2022Q3

REPORT INFORMATION
  Report Type: Spontaneous
  Country: US (occurrence: US)
  Receive Date: 20220707
  Receipt Date: 20220707
  Transmission Date: 20221027
  Serious: Yes (Other)
  Sender: FDA-Public Use
  Company Number: US-BION-010835

PATIENT
  Sex: Female

DRUGS (1)
  1. IMODIUM A-D [Suspect]
     Active Substance: LOPERAMIDE HYDROCHLORIDE
     Indication: Diarrhoea
     Dosage: 3X DAY, 8 PER DAY

REACTIONS (3)
  - Incorrect product administration duration [Not Recovered/Not Resolved]
  - Nephrolithiasis [Unknown]
  - Incorrect dose administered [Not Recovered/Not Resolved]
